FAERS Safety Report 24853733 (Version 2)
Quarter: 2025Q1

REPORT INFORMATION
  Report Type: Report from Study
  Country: CA (occurrence: CA)
  Receive Date: 20250117
  Receipt Date: 20250228
  Transmission Date: 20250409
  Serious: Yes (Other)
  Sender: ROCHE
  Company Number: ROCHE-10000176666

PATIENT
  Age: 76 Year
  Sex: Male

DRUGS (7)
  1. ACTEMRA [Suspect]
     Active Substance: TOCILIZUMAB
     Indication: Uveitis
     Dosage: DRUG DOSE FIRST ADMINISTERED IS UNKNOWN ?MOREDOSAGEINFO IS NO PIRS AVAILABLE
     Route: 042
     Dates: start: 20170124
  2. ANDROGEL [Concomitant]
     Active Substance: TESTOSTERONE
  3. CYCLOSPORINE [Concomitant]
     Active Substance: CYCLOSPORINE
  4. DILANTIN [Concomitant]
     Active Substance: PHENYTOIN
  5. IBUPROFEN [Concomitant]
     Active Substance: IBUPROFEN
  6. METHOTREXATE [Concomitant]
     Active Substance: METHOTREXATE
  7. TIMOLOL [Concomitant]
     Active Substance: TIMOLOL
     Route: 047

REACTIONS (3)
  - Eye inflammation [Unknown]
  - Blindness unilateral [Unknown]
  - Off label use [Unknown]
